FAERS Safety Report 24346489 (Version 1)
Quarter: 2024Q3

REPORT INFORMATION
  Report Type: Spontaneous
  Country: US (occurrence: US)
  Receive Date: 20240921
  Receipt Date: 20240921
  Transmission Date: 20241017
  Serious: No
  Sender: MERCK
  Company Number: US-009507513-2409USA003696

PATIENT
  Age: 69 Year
  Sex: Male

DRUGS (2)
  1. WELIREG [Suspect]
     Active Substance: BELZUTIFAN
     Indication: Renal cancer metastatic
     Dosage: UNK
     Route: 048
  2. WELIREG [Suspect]
     Active Substance: BELZUTIFAN
     Dosage: 40 MILLIGRAM, DAILY (QD)
     Route: 048

REACTIONS (1)
  - Anaemia [Unknown]
